FAERS Safety Report 9056499 (Version 2)
Quarter: 2013Q1

REPORT INFORMATION
  Report Type: Report from Study
  Country: FR (occurrence: FR)
  Receive Date: 20130131
  Receipt Date: 20130131
  Transmission Date: 20140127
  Serious: Yes (Hospitalization)
  Sender: FDA-Public Use
  Company Number: FR-PFIZER INC-2012270386

PATIENT
  Age: 48 Year
  Sex: Male
  Weight: 90 kg

DRUGS (7)
  1. SUNITINIB MALATE [Suspect]
     Indication: METASTATIC RENAL CELL CARCINOMA
     Dosage: 50 MG, 1X/DAY
     Route: 048
     Dates: start: 20110419, end: 20121025
  2. DOLIPRANE [Concomitant]
     Indication: PAIN
     Dosage: UNK
     Route: 048
  3. INEXIUM [Concomitant]
     Indication: GASTROOESOPHAGEAL REFLUX DISEASE
     Dosage: 40 MG, 1X/DAY
     Route: 048
  4. INSTANYL [Concomitant]
     Indication: PAIN
     Dosage: UNK
     Route: 055
  5. BI-PROFENID [Concomitant]
     Indication: PAIN
     Dosage: 100 MG, UNK
     Route: 048
  6. LASILIX [Concomitant]
     Dosage: 20 MG, 1X/DAY
     Route: 048
  7. DAFALGAN CODEINE [Concomitant]

REACTIONS (1)
  - Lung infection [Recovered/Resolved]
